FAERS Safety Report 8292376-2 (Version None)
Quarter: 2012Q2

REPORT INFORMATION
  Report Type: 
  Country: None (occurrence: None)
  Receive Date: 20120417
  Receipt Date: 20120402
  Transmission Date: 20120825
  Serious: Yes (Other)
  Sender: FDA-Public Use
  Company Number: CHPA2012US004478

PATIENT
  Age: 59 Year
  Sex: Female

DRUGS (12)
  1. CARBAMAZEPINE [Concomitant]
  2. DRUG THERAPY NOS [Concomitant]
  3. GABAPENTIN [Concomitant]
     Indication: POST HERPETIC NEURALGIA
     Dosage: 400 MG, TID
     Route: 048
     Dates: start: 20090301, end: 20120301
  4. OXYBUTYNIN [Concomitant]
     Indication: HYPERTONIC BLADDER
     Dosage: 5 MG, BID
     Route: 048
     Dates: start: 20101105, end: 20120301
  5. BUSPIRONE HCL [Concomitant]
     Indication: ANXIETY
     Dosage: 10 MG, TID
     Route: 048
     Dates: start: 20110808, end: 20120301
  6. VENTOLIN [Concomitant]
  7. DICLOFENAC SODIUM [Concomitant]
  8. NICOTINE [Suspect]
     Indication: SMOKING CESSATION THERAPY
     Dosage: 21 MG, QD
     Route: 062
     Dates: start: 20120203, end: 20120217
  9. LEVOTHYROXINE SODIUM [Concomitant]
     Indication: HYPOTHYROIDISM
     Dosage: 100 MCG, DAILY
     Route: 048
     Dates: start: 20050101, end: 20120301
  10. FAMOTIDINE [Concomitant]
  11. ASACOL [Concomitant]
  12. ADVAIR DISKUS 100/50 [Concomitant]

REACTIONS (1)
  - ASTHMA [None]
